FAERS Safety Report 25512043 (Version 1)
Quarter: 2025Q3

REPORT INFORMATION
  Report Type: Spontaneous
  Country: EU (occurrence: EU)
  Receive Date: 20250703
  Receipt Date: 20250703
  Transmission Date: 20251021
  Serious: Yes (Hospitalization, Other)
  Sender: AMGEN
  Company Number: EU-AMGEN-POLSP2025125162

PATIENT
  Age: 67 Year
  Sex: Female

DRUGS (1)
  1. ROMIPLOSTIM [Suspect]
     Active Substance: ROMIPLOSTIM
     Indication: Immune thrombocytopenia
     Route: 065
     Dates: start: 202401

REACTIONS (2)
  - Thrombocytopenia [Unknown]
  - Therapeutic product effect incomplete [Unknown]
